FAERS Safety Report 5916288-1 (Version None)
Quarter: 2008Q4

REPORT INFORMATION
  Report Type: 
  Country: None (occurrence: None)
  Receive Date: 20081013
  Receipt Date: 20081007
  Transmission Date: 20090506
  Serious: Yes (Death, Other)
  Sender: FDA-Public Use
  Company Number: PHHY2008MX23942

PATIENT
  Age: 94 Year
  Sex: Female

DRUGS (1)
  1. DIOVAN [Suspect]
     Dosage: UNK
     Route: 048
     Dates: start: 20030101

REACTIONS (4)
  - DEATH [None]
  - DEPRESSION [None]
  - EPISTAXIS [None]
  - MYOCARDIAL INFARCTION [None]
